FAERS Safety Report 5744391-8 (Version None)
Quarter: 2008Q2

REPORT INFORMATION
  Report Type: 
  Country: None (occurrence: None)
  Receive Date: 20080516
  Receipt Date: 20080319
  Transmission Date: 20081010
  Serious: Yes (Other)
  Sender: FDA-Public Use
  Company Number: 2008RS0053

PATIENT
  Age: 32 Year
  Sex: Male

DRUGS (2)
  1. RONDEC [Suspect]
     Indication: NASOPHARYNGITIS
     Dates: start: 20080201
  2. KEPPRA [Suspect]
     Indication: CONVULSION
     Dates: start: 20040101

REACTIONS (1)
  - STEVENS-JOHNSON SYNDROME [None]
